FAERS Safety Report 4265687-5 (Version None)
Quarter: 2004Q1

REPORT INFORMATION
  Report Type: 
  Country: None (occurrence: None)
  Receive Date: 20040107
  Receipt Date: 20040105
  Transmission Date: 20041129
  Serious: Yes (Hospitalization)
  Sender: FDA-Public Use
  Company Number: FR-GLAXOSMITHKLINE-B0318978A

PATIENT
  Age: 44 Year
  Sex: Female

DRUGS (12)
  1. EPIVIR [Suspect]
     Indication: HIV INFECTION
     Route: 048
     Dates: start: 20010521
  2. ZIAGEN [Suspect]
     Indication: HIV INFECTION
     Route: 048
     Dates: start: 20010521
  3. VIDEX [Suspect]
     Indication: HIV INFECTION
     Route: 048
     Dates: start: 20010521, end: 20031112
  4. SUSTIVA [Suspect]
     Indication: HIV INFECTION
     Route: 048
     Dates: start: 20001127
  5. MACROLIN (FRANCE) [Concomitant]
     Route: 058
  6. ANSATIPINE [Concomitant]
     Route: 048
  7. ZECLAR [Concomitant]
     Route: 065
  8. FLUCONAZOLE [Concomitant]
     Route: 048
  9. STILNOX [Concomitant]
     Route: 048
  10. SEROPRAM [Concomitant]
     Route: 065
  11. SPASFON [Concomitant]
     Route: 065
  12. DEBRIDAT [Concomitant]
     Route: 065

REACTIONS (3)
  - ELECTROLYTE IMBALANCE [None]
  - PANCREATITIS [None]
  - PYREXIA [None]
